FAERS Safety Report 10528493 (Version 1)
Quarter: 2014Q4

REPORT INFORMATION
  Report Type: Spontaneous
  Country: US (occurrence: US)
  Receive Date: 20141020
  Receipt Date: 20141020
  Transmission Date: 20150528
  Serious: Yes (Hospitalization, Other)
  Sender: FDA-Public Use
  Company Number: US-BRISTOL-MYERS SQUIBB COMPANY-21487913

PATIENT
  Age: 70 Year
  Sex: Female
  Weight: 61.22 kg

DRUGS (3)
  1. ABILIFY [Suspect]
     Active Substance: ARIPIPRAZOLE
     Indication: DEPRESSION
     Dosage: 30MG IN MG AND 15MG IN EVE
  2. KLONOPIN [Concomitant]
     Active Substance: CLONAZEPAM
  3. COGENTIN [Suspect]
     Active Substance: BENZTROPINE MESYLATE

REACTIONS (3)
  - Pneumonia [Unknown]
  - Catatonia [Unknown]
  - Accidental overdose [Unknown]
